FAERS Safety Report 20740598 (Version 1)
Quarter: 2022Q2

REPORT INFORMATION
  Report Type: Spontaneous
  Country: DE (occurrence: DE)
  Receive Date: 20220422
  Receipt Date: 20220422
  Transmission Date: 20220721
  Serious: Yes (Other)
  Sender: FDA-Public Use
  Company Number: None

PATIENT
  Age: 74 Year
  Sex: Male

DRUGS (6)
  1. ALBUTEROL [Interacting]
     Active Substance: ALBUTEROL
     Dosage: STRENGTH:50MG/10ML
     Route: 055
  2. SODIUM BICARBONATE [Interacting]
     Active Substance: SODIUM BICARBONATE
     Dosage: 3000 MILLIGRAM DAILY; 1-1-1
     Route: 065
  3. AMIODARONE [Interacting]
     Active Substance: AMIODARONE
     Dosage: .5 DOSAGE FORMS DAILY; 1/2-0-0-0,AMIODARON AL 200
     Route: 065
  4. CHOLECALCIFEROL [Interacting]
     Active Substance: CHOLECALCIFEROL
     Dosage: MONDAYS 1-0-0, ONCE A WEEK
     Route: 065
  5. METOPROLOL SUCCINATE [Interacting]
     Active Substance: METOPROLOL SUCCINATE
     Indication: Cardiovascular event prophylaxis
     Dosage: INTAKE FOR 7 YEARS
     Route: 065
     Dates: start: 2015
  6. ATORVASTATIN CALCIUM [Interacting]
     Active Substance: ATORVASTATIN CALCIUM
     Dosage: 20 MILLIGRAM DAILY; 0-0-0-1, STRENGTH 20MG
     Route: 065

REACTIONS (29)
  - Necrosis [Unknown]
  - Hallucination [Unknown]
  - Thrombocytopenia [Unknown]
  - Leukopenia [Unknown]
  - Photosensitivity reaction [Unknown]
  - Pruritus [Unknown]
  - Psoriasis [Unknown]
  - Tinnitus [Unknown]
  - Drug interaction [Unknown]
  - Personality change [Unknown]
  - Somnolence [Unknown]
  - Disturbance in attention [Unknown]
  - Memory impairment [Unknown]
  - Paraesthesia [Unknown]
  - Nightmare [Unknown]
  - Auditory disorder [Unknown]
  - Affect lability [Unknown]
  - Taste disorder [Unknown]
  - Arthralgia [Unknown]
  - Sleep disorder [Unknown]
  - Nasopharyngitis [Unknown]
  - Dry mouth [Unknown]
  - Memory impairment [Unknown]
  - Confusional state [Unknown]
  - Psoriasis [Unknown]
  - Nervousness [Unknown]
  - Muscular weakness [Unknown]
  - Depression [Unknown]
  - Anxiety [Unknown]
